FAERS Safety Report 10181952 (Version 1)
Quarter: 2014Q2

REPORT INFORMATION
  Report Type: Spontaneous
  Country: AU (occurrence: AU)
  Receive Date: 20140519
  Receipt Date: 20140519
  Transmission Date: 20141212
  Serious: Yes (Hospitalization, Other)
  Sender: FDA-Public Use
  Company Number: AU-B.I. PHARMACEUTICALS,INC./RIDGEFIELD-2014-BI-21314AU

PATIENT
  Sex: Female

DRUGS (1)
  1. PRADAXA [Suspect]
     Indication: ATRIAL FIBRILLATION
     Dosage: 220 MG
     Route: 065

REACTIONS (5)
  - Sepsis [Not Recovered/Not Resolved]
  - Subdural haemorrhage [Unknown]
  - Blood creatine increased [Unknown]
  - Gastrointestinal haemorrhage [Unknown]
  - Renal failure [Unknown]
